FAERS Safety Report 7771441-X (Version None)
Quarter: 2011Q3

REPORT INFORMATION
  Report Type: 
  Country: None (occurrence: None)
  Receive Date: 20110922
  Receipt Date: 20100915
  Transmission Date: 20111222
  Serious: Yes (Other)
  Sender: FDA-Public Use
  Company Number: US-ASTRAZENECA-2010SE43785

PATIENT
  Age: 530 Month
  Sex: Female

DRUGS (2)
  1. SEROQUEL [Suspect]
     Route: 048
  2. SEROQUEL [Suspect]
     Route: 048

REACTIONS (3)
  - EMOTIONAL DISTRESS [None]
  - DRUG DOSE OMISSION [None]
  - SUICIDAL IDEATION [None]
